FAERS Safety Report 19936065 (Version 1)
Quarter: 2021Q4

REPORT INFORMATION
  Report Type: Report from Study
  Country: US (occurrence: US)
  Receive Date: 20211008
  Receipt Date: 20211008
  Transmission Date: 20220303
  Serious: Yes (Hospitalization)
  Sender: FDA-Public Use
  Company Number: US-SA-SAC20210913000822

PATIENT

DRUGS (4)
  1. CEMIPLIMAB [Suspect]
     Active Substance: CEMIPLIMAB
     Indication: Neoplasm
     Dosage: 350 MG, Q3W
     Route: 042
  2. CEMIPLIMAB [Suspect]
     Active Substance: CEMIPLIMAB
     Dosage: 350 MG, Q3W
     Route: 042
  3. SAR-439459 [Suspect]
     Active Substance: SAR-439459
     Indication: Neoplasm
     Dosage: 22.5 MG/KG, Q3W
     Route: 042
  4. SAR-439459 [Suspect]
     Active Substance: SAR-439459
     Dosage: 22.5 MG/KG, Q3W
     Route: 042

REACTIONS (4)
  - Embolism [Unknown]
  - Cystitis noninfective [Recovered/Resolved]
  - Embolism [Not Recovered/Not Resolved]
  - Abdominal pain [Unknown]

NARRATIVE: CASE EVENT DATE: 20210827
